FAERS Safety Report 6742198-6 (Version None)
Quarter: 2010Q2

REPORT INFORMATION
  Report Type: 
  Country: None (occurrence: None)
  Receive Date: 20100524
  Receipt Date: 20100512
  Transmission Date: 20101027
  Serious: Yes (Hospitalization, Other)
  Sender: FDA-Public Use
  Company Number: 011776

PATIENT
  Sex: Female
  Weight: 73 kg

DRUGS (11)
  1. NEUPRO [Suspect]
     Indication: PARKINSON'S DISEASE
     Dosage: 16 MG QD TRANSDERMAL
     Route: 062
     Dates: start: 20091029, end: 20091202
  2. REQUIP [Suspect]
     Indication: PARKINSON'S DISEASE
     Dosage: 4 MG QD
     Dates: start: 20091202, end: 20091208
  3. STALEVO 100 [Suspect]
     Indication: PARKINSON'S DISEASE
     Dosage: 100 MG BID, 100 MG QOD
     Dates: start: 20091030, end: 20091030
  4. STALEVO 100 [Suspect]
     Indication: PARKINSON'S DISEASE
     Dosage: 100 MG BID, 100 MG QOD
     Dates: start: 20091031, end: 20100119
  5. NACOM (NACOM) [Suspect]
     Indication: PARKINSON'S DISEASE
     Dosage: 100 MG QID, 100 MG BID, 100 MG QD
     Dates: start: 20091029, end: 20091029
  6. NACOM (NACOM) [Suspect]
     Indication: PARKINSON'S DISEASE
     Dosage: 100 MG QID, 100 MG BID, 100 MG QD
     Dates: start: 20091030, end: 20091030
  7. NACOM (NACOM) [Suspect]
     Indication: PARKINSON'S DISEASE
     Dosage: 100 MG QID, 100 MG BID, 100 MG QD
     Dates: start: 20091102
  8. SIFROL (SIFROL) (NOT SPECIFIED) [Suspect]
     Indication: PARKINSON'S DISEASE
     Dosage: 0.7 MG, 1-0.5-1-0-1; 0.52 MG QD; 1.05 QD; 2.1 MG QD
     Dates: start: 20020101, end: 20091028
  9. SIFROL (SIFROL) (NOT SPECIFIED) [Suspect]
     Indication: PARKINSON'S DISEASE
     Dosage: 0.7 MG, 1-0.5-1-0-1; 0.52 MG QD; 1.05 QD; 2.1 MG QD
     Dates: start: 20091209, end: 20091211
  10. SIFROL (SIFROL) (NOT SPECIFIED) [Suspect]
     Indication: PARKINSON'S DISEASE
     Dosage: 0.7 MG, 1-0.5-1-0-1; 0.52 MG QD; 1.05 QD; 2.1 MG QD
     Dates: start: 20091212, end: 20091216
  11. SIFROL (SIFROL) (NOT SPECIFIED) [Suspect]
     Indication: PARKINSON'S DISEASE
     Dosage: 0.7 MG, 1-0.5-1-0-1; 0.52 MG QD; 1.05 QD; 2.1 MG QD
     Dates: start: 20091217

REACTIONS (1)
  - HOSPITALISATION [None]
